FAERS Safety Report 8005087-5 (Version None)
Quarter: 2011Q4

REPORT INFORMATION
  Report Type: 
  Country: None (occurrence: None)
  Receive Date: 20111223
  Receipt Date: 20111209
  Transmission Date: 20120403
  Serious: Yes (Other)
  Sender: FDA-Public Use
  Company Number: PHHY2011SE107623

PATIENT
  Sex: Female

DRUGS (5)
  1. OMEPRAZOLE [Concomitant]
  2. DICLOFENAC SODIUM [Concomitant]
  3. ACETAMINOPHEN [Concomitant]
  4. FEMARA [Suspect]
     Indication: BREAST CANCER
     Dosage: 2.5 MG, UNK
     Dates: start: 20111017, end: 20111207
  5. OXYCODONE HCL [Concomitant]

REACTIONS (4)
  - WEIGHT INCREASED [None]
  - MALIGNANT HYPERTENSION [None]
  - BLOOD PRESSURE INCREASED [None]
  - DYSPNOEA [None]
